FAERS Safety Report 17591627 (Version 1)
Quarter: 2020Q1

REPORT INFORMATION
  Report Type: Spontaneous
  Country: US (occurrence: US)
  Receive Date: 20200327
  Receipt Date: 20200327
  Transmission Date: 20200409
  Serious: Yes (Hospitalization)
  Sender: FDA-Public Use
  Company Number: None

PATIENT
  Age: 55 Year
  Sex: Female
  Weight: 62.1 kg

DRUGS (17)
  1. OMEPRAZOLE. [Concomitant]
     Active Substance: OMEPRAZOLE
  2. SIPRONLACTONE [Concomitant]
  3. VITAMIN B COMPLEX [Concomitant]
     Active Substance: CYANOCOBALAMIN\DEXPANTHENOL\NIACINAMIDE\PYRIDOXINE HYDROCHLORIDE\RIBOFLAVIN 5^-PHOSPHATE SODIUM\THIAMINE HYDROCHLORIDE\VITAMIN B COMPLEX
  4. CALCIUM [Concomitant]
     Active Substance: CALCIUM
  5. VIT. D-3 [Concomitant]
  6. EVENING PRIMROSE [Concomitant]
  7. MINOXIDIL. [Concomitant]
     Active Substance: MINOXIDIL
  8. PRAVASTATIN. [Concomitant]
     Active Substance: PRAVASTATIN
  9. FOSAMAX [Concomitant]
     Active Substance: ALENDRONATE SODIUM
  10. PREMPRO [Concomitant]
     Active Substance: ESTROGENS, CONJUGATED\MEDROXYPROGESTERONE ACETATE
  11. PREMARIN [Concomitant]
     Active Substance: ESTROGENS, CONJUGATED
  12. SINGULAIR [Concomitant]
     Active Substance: MONTELUKAST SODIUM
  13. VENTOLIN [Concomitant]
     Active Substance: ALBUTEROL SULFATE
  14. AZELASTINE. [Concomitant]
     Active Substance: AZELASTINE HYDROCHLORIDE
  15. PLAQUENIL [Suspect]
     Active Substance: HYDROXYCHLOROQUINE SULFATE
     Indication: RAYNAUD^S PHENOMENON
     Route: 048
     Dates: start: 20170417, end: 20170426
  16. TRIPLE OMEGA FISH OIL [Concomitant]
  17. DOXYCYCLINE. [Concomitant]
     Active Substance: DOXYCYCLINE

REACTIONS (6)
  - Urticaria [None]
  - Skin swelling [None]
  - Pharyngeal disorder [None]
  - Therapy cessation [None]
  - Folliculitis [None]
  - Oral disorder [None]

NARRATIVE: CASE EVENT DATE: 20170424
